FAERS Safety Report 14973514 (Version 1)
Quarter: 2018Q2

REPORT INFORMATION
  Report Type: Report from Study
  Country: BR (occurrence: BR)
  Receive Date: 20180605
  Receipt Date: 20180605
  Transmission Date: 20180711
  Serious: Yes (Other)
  Sender: FDA-Public Use
  Company Number: PHHY2018BR012134

PATIENT
  Age: 34 Year
  Sex: Female
  Weight: 74 kg

DRUGS (1)
  1. SANDOSTATIN LAR DEPOT [Suspect]
     Active Substance: OCTREOTIDE ACETATE
     Indication: ACROMEGALY
     Dosage: 30 MG, QMO
     Route: 030
     Dates: start: 2007

REACTIONS (8)
  - Gait disturbance [Not Recovered/Not Resolved]
  - Rhinorrhoea [Unknown]
  - Malaise [Unknown]
  - Cough [Unknown]
  - Maternal exposure during pregnancy [Not Recovered/Not Resolved]
  - Influenza [Unknown]
  - Diabetes mellitus [Unknown]
  - Vein disorder [Not Recovered/Not Resolved]

NARRATIVE: CASE EVENT DATE: 201710
